FAERS Safety Report 11874559 (Version 1)
Quarter: 2015Q4

REPORT INFORMATION
  Report Type: Spontaneous
  Country: None (occurrence: None)
  Receive Date: 20151228
  Receipt Date: 20151228
  Transmission Date: 20160305
  Serious: No
  Sender: FDA-Public Use
  Company Number: None

PATIENT
  Age: 47 Year
  Sex: Male

DRUGS (2)
  1. INVOKANA [Suspect]
     Active Substance: CANAGLIFLOZIN
  2. METFORMIN [Suspect]
     Active Substance: METFORMIN HYDROCHLORIDE

REACTIONS (13)
  - Exercise tolerance decreased [None]
  - Insomnia [None]
  - Multiple allergies [None]
  - Tremor [None]
  - Drug dose omission [None]
  - Memory impairment [None]
  - Pain [None]
  - Nausea [None]
  - Impaired driving ability [None]
  - Blood testosterone decreased [None]
  - Activities of daily living impaired [None]
  - Pharyngeal oedema [None]
  - Urinary retention [None]
